FAERS Safety Report 16914827 (Version 1)
Quarter: 2019Q4

REPORT INFORMATION
  Report Type: Spontaneous
  Country: DE (occurrence: US)
  Receive Date: 20191014
  Receipt Date: 20191014
  Transmission Date: 20200122
  Serious: Yes (Other)
  Sender: FDA-Public Use
  Company Number: DE-BAUSCH-BL-2019-010352

PATIENT
  Age: 21 Year
  Sex: Female
  Weight: 50 kg

DRUGS (1)
  1. ELIDEL [Suspect]
     Active Substance: PIMECROLIMUS
     Indication: PRODUCT USED FOR UNKNOWN INDICATION
     Dosage: USED ON CHEEKBONES, COVERED THE WHOLE FACE EXCEPT FOREHEAD.
     Route: 061
     Dates: start: 20180615, end: 20180622

REACTIONS (2)
  - Acne [Not Recovered/Not Resolved]
  - Infestation [Not Recovered/Not Resolved]

NARRATIVE: CASE EVENT DATE: 20180622
